FAERS Safety Report 9575372 (Version 1)
Quarter: 2013Q4

REPORT INFORMATION
  Report Type: Spontaneous
  Country: US (occurrence: US)
  Receive Date: 20131001
  Receipt Date: 20131001
  Transmission Date: 20140711
  Serious: No
  Sender: FDA-Public Use
  Company Number: US-AMGEN-USASP2013002035

PATIENT
  Age: 13 Year
  Sex: Female
  Weight: 40.8 kg

DRUGS (3)
  1. ENBREL [Suspect]
     Indication: JUVENILE IDIOPATHIC ARTHRITIS
     Dosage: 25 MG, QWK
     Route: 058
     Dates: start: 2012
  2. METHOTREXATE [Concomitant]
     Dosage: UNK
  3. IBUPROFEN [Concomitant]
     Indication: SWELLING
     Dosage: UNK

REACTIONS (2)
  - Arthralgia [Recovered/Resolved]
  - Swelling [Recovered/Resolved]
